FAERS Safety Report 10624886 (Version 3)
Quarter: 2015Q3

REPORT INFORMATION
  Report Type: Report from Study
  Country: MX (occurrence: MX)
  Receive Date: 20141204
  Receipt Date: 20150909
  Transmission Date: 20151125
  Serious: Yes (Disabling)
  Sender: FDA-Public Use
  Company Number: MX-ROCHE-1501425

PATIENT
  Age: 70 Year
  Sex: Female
  Weight: 75 kg

DRUGS (6)
  1. INSULINE [Concomitant]
     Active Substance: INSULIN NOS
     Indication: DIABETES MELLITUS
     Route: 065
  2. ROACTEMRA [Suspect]
     Active Substance: TOCILIZUMAB
     Indication: RHEUMATOID ARTHRITIS
     Dosage: LATEST DOSE OF TOCILIZUMAB INFUSION WAS RECEIVED ON 03/NOV/2014.
     Route: 042
     Dates: start: 2012
  3. ARAVA [Concomitant]
     Active Substance: LEFLUNOMIDE
     Indication: RHEUMATOID ARTHRITIS
     Route: 065
  4. NOVOTIRAL [Concomitant]
     Active Substance: LEVOTHYROXINE
     Indication: THYROID DISORDER
     Route: 065
  5. PROFENID [Concomitant]
     Active Substance: KETOPROFEN
     Indication: RHEUMATOID ARTHRITIS
     Route: 065
  6. ASPIRIN. [Concomitant]
     Active Substance: ASPIRIN
     Indication: DIABETES MELLITUS
     Route: 065

REACTIONS (4)
  - Tuberculosis [Recovering/Resolving]
  - Throat lesion [Not Recovered/Not Resolved]
  - Tongue blistering [Not Recovered/Not Resolved]
  - Immunodeficiency [Not Recovered/Not Resolved]

NARRATIVE: CASE EVENT DATE: 2013
